FAERS Safety Report 4592199-1 (Version None)
Quarter: 2005Q1

REPORT INFORMATION
  Report Type: 
  Country: None (occurrence: None)
  Receive Date: 20050228
  Receipt Date: 20050216
  Transmission Date: 20050727
  Serious: Yes (Hospitalization)
  Sender: FDA-Public Use
  Company Number: US-JNJFOC-20050204534

PATIENT
  Sex: Female

DRUGS (16)
  1. INFLIXIMAB [Suspect]
     Indication: RHEUMATOID ARTHRITIS
     Dosage: EVERY 8 WEEKS
     Route: 042
  2. METHOTREXATE [Concomitant]
  3. FOLIC ACID [Concomitant]
  4. CITRACAL D [Concomitant]
  5. CITRACAL D [Concomitant]
  6. HYOSCYAMINE [Concomitant]
  7. SYNTHROID [Concomitant]
  8. ULTRAM [Concomitant]
     Route: 049
  9. EFFEXOR [Concomitant]
  10. INDAPAMIDE [Concomitant]
  11. LANTUS [Concomitant]
  12. AMARYL [Concomitant]
  13. PRILOSEC [Concomitant]
  14. AVANDAMET [Concomitant]
  15. DIGOXIN [Concomitant]
  16. COUMADIN [Concomitant]

REACTIONS (5)
  - ATRIAL FIBRILLATION [None]
  - CARDIAC FAILURE CONGESTIVE [None]
  - MITRAL VALVE DISEASE [None]
  - PULMONARY CONGESTION [None]
  - TRICUSPID VALVE DISEASE [None]
